FAERS Safety Report 9363010 (Version 1)
Quarter: 2013Q2

REPORT INFORMATION
  Report Type: Spontaneous
  Country: JP (occurrence: JP)
  Receive Date: 20130624
  Receipt Date: 20130624
  Transmission Date: 20140414
  Serious: Yes (Other)
  Sender: FDA-Public Use
  Company Number: JP-ROCHE-1238128

PATIENT
  Age: 7 Decade
  Sex: Male

DRUGS (4)
  1. XELODA [Suspect]
     Indication: COLON CANCER
     Dosage: DOSAGE IS UNCERTAIN.
     Route: 048
  2. AVASTIN [Suspect]
     Indication: COLON CANCER
     Dosage: DOSAGE IS UNCERTAIN.
     Route: 041
  3. OXALIPLATIN [Concomitant]
     Indication: COLON CANCER
     Dosage: DOSAGE IS UNCERTAIN.
     Route: 041
  4. WARFARIN POTASSIUM [Concomitant]
     Dosage: DOSAGE IS UNCERTAIN.
     Route: 065

REACTIONS (5)
  - Fall [Unknown]
  - Humerus fracture [Unknown]
  - Traumatic intracranial haemorrhage [Unknown]
  - International normalised ratio increased [Unknown]
  - International normalised ratio fluctuation [Unknown]
